FAERS Safety Report 4631205-2 (Version None)
Quarter: 2005Q2

REPORT INFORMATION
  Report Type: 
  Country: None (occurrence: None)
  Receive Date: 20050407
  Receipt Date: 20050407
  Transmission Date: 20051028
  Serious: Yes (Other)
  Sender: FDA-Public Use
  Company Number: None

PATIENT
  Sex: Female
  Weight: 81.6475 kg

DRUGS (10)
  1. FENTANYL PATCH BY SERDOZ [Suspect]
     Indication: INTERVERTEBRAL DISC DISORDER
     Dosage: 50 MCG Q 72H TRANSDERMAL
     Route: 062
     Dates: start: 20050301
  2. FENTANYL PATCH BY SERDOZ [Suspect]
     Indication: PAIN
     Dosage: 50 MCG Q 72H TRANSDERMAL
     Route: 062
     Dates: start: 20050301
  3. FENTANYL PATCH BY SERDOZ [Suspect]
     Indication: SJOGREN'S SYNDROME
     Dosage: 50 MCG Q 72H TRANSDERMAL
     Route: 062
     Dates: start: 20050301
  4. BACLOFEN [Concomitant]
  5. PROVIGIL [Concomitant]
  6. BUSPAR [Concomitant]
  7. CYMBALTA [Concomitant]
  8. SALAGEN [Concomitant]
  9. RESTASIS [Concomitant]
  10. TYLENOL W/ CODEINE NO. 3 [Concomitant]

REACTIONS (2)
  - PAIN [None]
  - PHARMACEUTICAL PRODUCT COMPLAINT [None]
